FAERS Safety Report 8070272-3 (Version None)
Quarter: 2012Q1

REPORT INFORMATION
  Report Type: 
  Country: None (occurrence: None)
  Receive Date: 20120125
  Receipt Date: 20120124
  Transmission Date: 20120608
  Serious: Yes (Hospitalization, Other)
  Sender: FDA-Public Use
  Company Number: US-BAYER-2011-064673

PATIENT
  Age: 45 Year
  Sex: Female

DRUGS (7)
  1. BETASERON [Suspect]
     Indication: RELAPSING-REMITTING MULTIPLE SCLEROSIS
     Dosage: UNK
     Dates: start: 20070309, end: 20081231
  2. ACETAMINOPHEN [Concomitant]
  3. BETASERON [Suspect]
     Dosage: UNK
     Dates: start: 20090101, end: 20110601
  4. BETASERON [Suspect]
     Dosage: 4 MIU, QOD
     Route: 058
     Dates: start: 20110825
  5. IBUPROFEN [Concomitant]
  6. ALEVE (CAPLET) [Concomitant]
  7. BETASERON [Suspect]
     Dosage: 8 MIU, QOD
     Route: 058
     Dates: end: 20111101

REACTIONS (12)
  - HYPOAESTHESIA [None]
  - MULTIPLE SCLEROSIS RELAPSE [None]
  - PAIN IN EXTREMITY [None]
  - UPPER RESPIRATORY TRACT INFECTION [None]
  - BLOOD POTASSIUM DECREASED [None]
  - BRONCHITIS [None]
  - COUGH [None]
  - BENIGN NEOPLASM [None]
  - MUSCULAR WEAKNESS [None]
  - OVARIAN CANCER [None]
  - GAIT DISTURBANCE [None]
  - EYE PAIN [None]
